FAERS Safety Report 8988627 (Version 2)
Quarter: 2013Q1

REPORT INFORMATION
  Report Type: Spontaneous
  Country: US (occurrence: US)
  Receive Date: 20121227
  Receipt Date: 20130122
  Transmission Date: 20140127
  Serious: Yes (Death, Hospitalization)
  Sender: FDA-Public Use
  Company Number: US-GILEAD-2012-0066936

PATIENT
  Age: 78 Year
  Sex: Female

DRUGS (12)
  1. LETAIRIS [Suspect]
     Indication: PULMONARY HYPERTENSION
     Dosage: 5 MG, QD
     Route: 048
     Dates: start: 20121128
  2. LETAIRIS [Suspect]
     Indication: RHEUMATIC HEART DISEASE
  3. ADCIRCA [Concomitant]
  4. BUMETANIDE [Concomitant]
  5. NORTRIPTYLINE [Concomitant]
  6. TRAZODONE [Concomitant]
  7. LORAZEPAM [Concomitant]
  8. LISINOPRIL [Concomitant]
  9. CALCIUM/VITAMIN D                  /01204201/ [Concomitant]
  10. OMEPRAZOLE [Concomitant]
  11. SIMVASTATIN [Concomitant]
  12. DIGOXIN [Concomitant]

REACTIONS (5)
  - Cardiac failure [Fatal]
  - Weight increased [Unknown]
  - Dysuria [Unknown]
  - Dyspnoea exertional [Unknown]
  - Fatigue [Unknown]
